FAERS Safety Report 10922381 (Version 2)
Quarter: 2015Q2

REPORT INFORMATION
  Report Type: Spontaneous
  Country: US (occurrence: US)
  Receive Date: 20150317
  Receipt Date: 20150414
  Transmission Date: 20150821
  Serious: Yes (Other)
  Sender: FDA-Public Use
  Company Number: US-PFIZER INC-2015053508

PATIENT
  Age: 50 Year
  Sex: Female
  Weight: 61.32 kg

DRUGS (9)
  1. CISPLATIN. [Suspect]
     Active Substance: CISPLATIN
     Indication: THYMOMA MALIGNANT
     Dosage: UNK
     Route: 065
     Dates: start: 2006
  2. CYTOXAN [Suspect]
     Active Substance: CYCLOPHOSPHAMIDE
     Indication: THYMOMA MALIGNANT
     Dosage: UNK
     Route: 065
     Dates: start: 2006
  3. TAXOL [Suspect]
     Active Substance: PACLITAXEL
     Indication: THYMOMA MALIGNANT
     Dosage: 100 MG/M2, UNK
     Route: 065
     Dates: start: 201307
  4. CARBOPLATIN. [Suspect]
     Active Substance: CARBOPLATIN
     Indication: THYMOMA MALIGNANT
     Dosage: UNK
     Route: 065
     Dates: start: 201307
  5. DEXAMETHASONE. [Concomitant]
     Active Substance: DEXAMETHASONE
     Dosage: 4 MG, (DAY BEFORE, DAY AND DAY AFTER ALIMATA EVERY 21 DAYS (4 MG,1 IN 2 D)
     Route: 048
  6. ADRIAMYCIN [Suspect]
     Active Substance: DOXORUBICIN HYDROCHLORIDE
     Indication: THYMOMA MALIGNANT
     Dosage: UNK
     Route: 065
     Dates: start: 2006
  7. ALIMTA [Concomitant]
     Active Substance: PEMETREXED DISODIUM
     Dosage: 500 MG/M2, 1 IN 21 D (23.8095 MG/M2)
     Route: 065
  8. AFINITOR [Concomitant]
     Active Substance: EVEROLIMUS
     Dosage: 10 MG, 1 IN 1 D
     Route: 048
  9. FOLIC ACID. [Concomitant]
     Active Substance: FOLIC ACID
     Dosage: 1 MG, 1 IN 1 D
     Route: 048

REACTIONS (5)
  - Neutropenia [Unknown]
  - Thymoma malignant [Unknown]
  - Product use issue [Unknown]
  - Neuropathy peripheral [Unknown]
  - Disease progression [Unknown]

NARRATIVE: CASE EVENT DATE: 20060723
